FAERS Safety Report 7141458-7 (Version None)
Quarter: 2010Q4

REPORT INFORMATION
  Report Type: 
  Country: None (occurrence: None)
  Receive Date: 20101126
  Receipt Date: 20101110
  Transmission Date: 20110411
  Serious: Yes (Hospitalization, Other)
  Sender: FDA-Public Use
  Company Number: 759134

PATIENT
  Age: 36 Year
  Sex: Female

DRUGS (1)
  1. CALCIUM FOLINATE INJECTION 10 MG/ML (INJECTION) (CALCIUM FOLINATE) [Suspect]
     Indication: COLON CANCER
     Dosage: 87 MG MILLIGRAM(S), 1 WEEK, INTRAVENOUS
     Route: 042
     Dates: start: 20101108, end: 20101108

REACTIONS (3)
  - ANAPHYLACTIC REACTION [None]
  - CHILLS [None]
  - PYREXIA [None]
